FAERS Safety Report 7201206-9 (Version None)
Quarter: 2010Q4

REPORT INFORMATION
  Report Type: 
  Country: None (occurrence: None)
  Receive Date: 20101227
  Receipt Date: 20101227
  Transmission Date: 20110411
  Serious: Yes (Hospitalization)
  Sender: FDA-Public Use
  Company Number: None

PATIENT
  Age: 19 Year
  Sex: Female
  Weight: 61 kg

DRUGS (1)
  1. TOPIRAMATE [Suspect]
     Indication: BIPOLAR DISORDER
     Dosage: 100 MG BID PO
     Route: 048
     Dates: start: 20060101, end: 20101115

REACTIONS (6)
  - ACIDOSIS HYPERCHLORAEMIC [None]
  - ALCOHOL USE [None]
  - BLOOD GLUCOSE INCREASED [None]
  - DRUG SCREEN POSITIVE [None]
  - HYPOKALAEMIA [None]
  - LOSS OF CONSCIOUSNESS [None]
